FAERS Safety Report 6278524-4 (Version None)
Quarter: 2009Q3

REPORT INFORMATION
  Report Type: 
  Country: None (occurrence: None)
  Receive Date: 20090722
  Receipt Date: 20080611
  Transmission Date: 20100115
  Serious: No
  Sender: FDA-Public Use
  Company Number: CA-BAUSCH-2008BL002588

PATIENT
  Age: 74 Year
  Sex: Female

DRUGS (1)
  1. OPCON-A [Suspect]
     Indication: EYE PRURITUS
     Route: 047
     Dates: start: 20080606, end: 20080610

REACTIONS (2)
  - BURNING SENSATION [None]
  - OCULAR HYPERAEMIA [None]
